FAERS Safety Report 8394391-7 (Version None)
Quarter: 2012Q2

REPORT INFORMATION
  Report Type: 
  Country: None (occurrence: None)
  Receive Date: 20120525
  Receipt Date: 20120525
  Transmission Date: 20120825
  Serious: Yes (Life-Threatening, Other)
  Sender: FDA-Public Use
  Company Number: None

PATIENT
  Age: 82 Year
  Sex: Female
  Weight: 47.1741 kg

DRUGS (1)
  1. FENTANYL [Suspect]
     Indication: PAIN
     Dosage: 1 PATCH THINK EVERY 2-3 DA TRANSDERMAL
     Route: 062
     Dates: start: 20120511, end: 20120519

REACTIONS (13)
  - SWOLLEN TONGUE [None]
  - GINGIVAL SWELLING [None]
  - TONGUE DISORDER [None]
  - THERMAL BURN [None]
  - FEELING ABNORMAL [None]
  - OEDEMA MOUTH [None]
  - GLOSSITIS [None]
  - PRURITUS [None]
  - HALLUCINATION [None]
  - ERYTHEMA [None]
  - RASH [None]
  - PAIN IN JAW [None]
  - MASTICATION DISORDER [None]
